FAERS Safety Report 10670468 (Version 1)
Quarter: 2014Q4

REPORT INFORMATION
  Report Type: Spontaneous
  Country: FR (occurrence: FR)
  Receive Date: 20141223
  Receipt Date: 20141223
  Transmission Date: 20150529
  Serious: Yes (Hospitalization)
  Sender: FDA-Public Use
  Company Number: FR-TEVA-530184ISR

PATIENT
  Age: 70 Year
  Sex: Male

DRUGS (7)
  1. FOLFOX [Concomitant]
     Active Substance: FLUOROURACIL\LEUCOVORIN CALCIUM\OXALIPLATIN
  2. LEXOMIL [Concomitant]
     Active Substance: BROMAZEPAM
  3. OXALIPLATINE TEVA [Suspect]
     Active Substance: OXALIPLATIN
     Route: 042
     Dates: start: 20141016, end: 20141016
  4. COAPROVEL [Concomitant]
     Active Substance: HYDROCHLOROTHIAZIDE\IRBESARTAN
  5. VECTIBIX [Suspect]
     Active Substance: PANITUMUMAB
     Route: 042
     Dates: start: 20141016, end: 20141016
  6. FLUOROURACILE PFIZER [Suspect]
     Active Substance: FLUOROURACIL
     Route: 042
     Dates: start: 20141016, end: 20141016
  7. LERCAN [Concomitant]
     Active Substance: LERCANIDIPINE

REACTIONS (7)
  - Malaise [Recovered/Resolved]
  - Urinary incontinence [Unknown]
  - Pyrexia [Recovered/Resolved]
  - Loss of consciousness [Recovered/Resolved]
  - Rash [Recovered/Resolved]
  - Confusional state [Recovered/Resolved]
  - Palpitations [Unknown]

NARRATIVE: CASE EVENT DATE: 20141016
